FAERS Safety Report 15531430 (Version 1)
Quarter: 2018Q4

REPORT INFORMATION
  Report Type: Spontaneous
  Country: US (occurrence: US)
  Receive Date: 20181019
  Receipt Date: 20181019
  Transmission Date: 20190205
  Serious: Yes (Hospitalization, Other)
  Sender: FDA-Public Use
  Company Number: US-HIKMA PHARMACEUTICALS USA INC.-US-H14001-18-07889

PATIENT
  Age: 36 Year
  Sex: Male

DRUGS (3)
  1. CARISOPRODOL. [Concomitant]
     Active Substance: CARISOPRODOL
     Indication: PRODUCT USED FOR UNKNOWN INDICATION
     Dosage: ()
     Route: 048
  2. OXYCODONE HYDROCHLORIDE/PARACETAMOL [Suspect]
     Active Substance: ACETAMINOPHEN\OXYCODONE HYDROCHLORIDE
     Indication: PRODUCT USED FOR UNKNOWN INDICATION
     Dosage: 5-15 G OF APAP DAILY IN OPIOID-APAP FORM ()
     Route: 048
  3. HYDROCODONE/PARACETAMOL [Suspect]
     Active Substance: ACETAMINOPHEN\HYDROCODONE BITARTRATE
     Indication: PRODUCT USED FOR UNKNOWN INDICATION
     Dosage: 5-15 G OF APAP DAILY IN OPIOID-APAP FORM ()
     Route: 048

REACTIONS (8)
  - Lactic acidosis [Unknown]
  - Toxicity to various agents [Unknown]
  - Liver injury [Unknown]
  - Hepatotoxicity [Unknown]
  - Overdose [Unknown]
  - Kussmaul respiration [Unknown]
  - Acute hepatic failure [Unknown]
  - Drug abuse [Unknown]
